FAERS Safety Report 10680261 (Version 3)
Quarter: 2016Q4

REPORT INFORMATION
  Report Type: Spontaneous
  Country: US (occurrence: US)
  Receive Date: 20141229
  Receipt Date: 20161219
  Transmission Date: 20170206
  Serious: Yes (Hospitalization)
  Sender: FDA-Public Use
  Company Number: US-SA-2013SA126264

PATIENT
  Age: 80 Year
  Sex: Male
  Weight: 94 kg

DRUGS (15)
  1. ASPIRIN. [Suspect]
     Active Substance: ASPIRIN
     Route: 048
  2. ATORVASTATIN CALCIUM. [Concomitant]
     Active Substance: ATORVASTATIN CALCIUM
     Dosage: STRENGTH: 4 MG
  3. COLACE [Concomitant]
     Active Substance: DOCUSATE SODIUM
     Route: 048
  4. HYDROCHLOROTHIAZIDE. [Concomitant]
     Active Substance: HYDROCHLOROTHIAZIDE
     Route: 048
  5. ONDANSETRON [Concomitant]
     Active Substance: ONDANSETRON
     Dosage: STRENGTH: 4 MG
  6. NORVASC [Concomitant]
     Active Substance: AMLODIPINE BESYLATE
     Route: 048
  7. LISINOPRIL. [Concomitant]
     Active Substance: LISINOPRIL
  8. PLAVIX [Suspect]
     Active Substance: CLOPIDOGREL BISULFATE
     Indication: PROPHYLAXIS
     Route: 048
     Dates: start: 20090323, end: 20111208
  9. METOPROLOL. [Concomitant]
     Active Substance: METOPROLOL
     Dosage: STRENGTH: 25 MG
  10. MECLIZINE [Concomitant]
     Active Substance: MECLIZINE HYDROCHLORIDE
     Dosage: Q.H.S.
     Route: 048
  11. DICLOFENAC SODIUM. [Concomitant]
     Active Substance: DICLOFENAC SODIUM
  12. SIMVASTATIN. [Concomitant]
     Active Substance: SIMVASTATIN
     Route: 048
  13. TORADOL [Concomitant]
     Active Substance: KETOROLAC TROMETHAMINE
     Route: 048
  14. TRAMADOL. [Concomitant]
     Active Substance: TRAMADOL
  15. IMDUR [Concomitant]
     Active Substance: ISOSORBIDE MONONITRATE

REACTIONS (2)
  - Subdural haematoma [Unknown]
  - Cerebral haemorrhage [Unknown]

NARRATIVE: CASE EVENT DATE: 20111207
